FAERS Safety Report 17398978 (Version 1)
Quarter: 2020Q1

REPORT INFORMATION
  Report Type: Report from Study
  Country: US (occurrence: US)
  Receive Date: 20200210
  Receipt Date: 20200210
  Transmission Date: 20200409
  Serious: Yes (Death, Other)
  Sender: FDA-Public Use
  Company Number: US-JAZZ-2020-US-001765

PATIENT

DRUGS (1)
  1. XYREM [Suspect]
     Active Substance: SODIUM OXYBATE
     Indication: EXPOSURE DURING PREGNANCY
     Route: 015

REACTIONS (1)
  - Death neonatal [Fatal]

NARRATIVE: CASE EVENT DATE: 201509
